FAERS Safety Report 8024514 (Version 3)
Quarter: 2014Q3

REPORT INFORMATION
  Report Type: Spontaneous
  Country: US (occurrence: US)
  Receive Date: 20110707
  Receipt Date: 20140728
  Transmission Date: 20150326
  Serious: Yes (Other)
  Sender: FDA-Public Use
  Company Number: US-RANBAXY-2011US-45586

PATIENT
  Sex: Female
  Weight: 54.42 kg

DRUGS (2)
  1. CLINDAMYCIN [Suspect]
     Active Substance: CLINDAMYCIN\CLINDAMYCIN PHOSPHATE
     Indication: ROCKY MOUNTAIN SPOTTED FEVER
     Dosage: 150 MG, QID
     Route: 048
     Dates: start: 20110616
  2. QUALAQUIN [Suspect]
     Active Substance: QUININE SULFATE
     Indication: ROCKY MOUNTAIN SPOTTED FEVER
     Dosage: 324 MG, 2 TABLETS TID
     Route: 048
     Dates: start: 20110616

REACTIONS (2)
  - Off label use [Unknown]
  - Hearing impaired [Unknown]
